FAERS Safety Report 14200651 (Version 1)
Quarter: 2017Q4

REPORT INFORMATION
  Report Type: Spontaneous
  Country: BR (occurrence: BR)
  Receive Date: 20171117
  Receipt Date: 20171117
  Transmission Date: 20180321
  Serious: Yes (Other)
  Sender: FDA-Public Use
  Company Number: BR-JAZZ-2017-BR-014981

PATIENT
  Age: 3 Year
  Sex: Female

DRUGS (1)
  1. DEFIBROTIDE (NPB) [Suspect]
     Active Substance: DEFIBROTIDE SODIUM
     Indication: VENOOCCLUSIVE DISEASE
     Dosage: 6.25 MG/KG, Q6D

REACTIONS (2)
  - Ascites [Recovering/Resolving]
  - Condition aggravated [Recovering/Resolving]
